FAERS Safety Report 10929683 (Version 1)
Quarter: 2015Q1

REPORT INFORMATION
  Report Type: Spontaneous
  Country: US (occurrence: CA)
  Receive Date: 20150319
  Receipt Date: 20150319
  Transmission Date: 20150721
  Serious: Yes (Other)
  Sender: FDA-Public Use
  Company Number: US-APOTEX-2015AP007295

PATIENT
  Sex: Female

DRUGS (1)
  1. APO-CALCITONIN NASAL SPRAY [Suspect]
     Active Substance: CALCITONIN SALMON
     Indication: OSTEOPOROSIS
     Dosage: UNK
     Route: 065
     Dates: start: 200302, end: 201308

REACTIONS (5)
  - Somnolence [Unknown]
  - Activities of daily living impaired [Unknown]
  - Quality of life decreased [None]
  - Anhedonia [Unknown]
  - Lymphoma [Recovering/Resolving]

NARRATIVE: CASE EVENT DATE: 201201
